FAERS Safety Report 9681849 (Version 3)
Quarter: 2013Q4

REPORT INFORMATION
  Report Type: Spontaneous
  Country: US (occurrence: US)
  Receive Date: 20131111
  Receipt Date: 20131212
  Transmission Date: 20140711
  Serious: No
  Sender: FDA-Public Use
  Company Number: US-PFIZER INC-2013320761

PATIENT
  Age: 61 Year
  Sex: Female
  Weight: 70.3 kg

DRUGS (4)
  1. LYRICA [Suspect]
     Indication: SCIATICA
     Dosage: 50 MG, 1X/DAY
     Route: 048
     Dates: start: 201310
  2. LYRICA [Suspect]
     Indication: NEURALGIA
     Dosage: 50 MG, 4X/DAY
     Route: 048
  3. TOPROL [Concomitant]
     Indication: HYPERTENSION
     Dosage: UNK
  4. VICODIN [Concomitant]
     Dosage: [HYDROCODONE BITARTRATE 5MG]/[PARACETAMOL 325MG], 3X/DAY

REACTIONS (2)
  - Neuralgia [Not Recovered/Not Resolved]
  - Feeling abnormal [Recovered/Resolved]
